FAERS Safety Report 8937160 (Version 2)
Quarter: 2013Q1

REPORT INFORMATION
  Report Type: Spontaneous
  Country: JP (occurrence: None)
  Receive Date: 20121123
  Receipt Date: 20121226
  Transmission Date: 20140127
  Serious: Yes (Hospitalization)
  Sender: FDA-Public Use
  Company Number: AE-SPE-2012-024

PATIENT
  Age: 33 Month
  Sex: Female

DRUGS (2)
  1. MEIACT MS FINE GRANULES (CEFDITOREN PIVOXIL) [Suspect]
     Indication: NASOPHARYNGITIS
     Dosage: 1.2 UNKNOWN UNITS/DAY, ORAL
     Dates: start: 20121022, end: 20121027
  2. EXPECTORANT [Concomitant]

REACTIONS (6)
  - Hypoglycaemia [None]
  - Decreased appetite [None]
  - Blood ketone body increased [None]
  - Depressed level of consciousness [None]
  - Asthenia [None]
  - Unresponsive to stimuli [None]
